FAERS Safety Report 24907890 (Version 2)
Quarter: 2025Q3

REPORT INFORMATION
  Report Type: Spontaneous
  Country: US (occurrence: US)
  Receive Date: 20250131
  Receipt Date: 20250725
  Transmission Date: 20251021
  Serious: Yes (Hospitalization, Other)
  Sender: CSL BEHRING
  Company Number: US-BEH-2025193354

PATIENT
  Age: 50 Year
  Sex: Female

DRUGS (26)
  1. HIZENTRA [Suspect]
     Active Substance: HUMAN IMMUNOGLOBULIN G
     Indication: Combined immunodeficiency
     Route: 065
  2. HIZENTRA [Suspect]
     Active Substance: HUMAN IMMUNOGLOBULIN G
     Dosage: 17 G, QW
     Route: 058
  3. ALBUTEROL SULFATE [Concomitant]
     Active Substance: ALBUTEROL SULFATE
  4. AMITRIPTYLINE [Concomitant]
     Active Substance: AMITRIPTYLINE
  5. Aspirin chemipharm [Concomitant]
  6. BUSPIRONE HCL [Concomitant]
     Active Substance: BUSPIRONE HYDROCHLORIDE
  7. CLONAZEPAM [Concomitant]
     Active Substance: CLONAZEPAM
  8. CYMBALTA [Concomitant]
     Active Substance: DULOXETINE HYDROCHLORIDE
  9. CYTOMEL [Concomitant]
     Active Substance: LIOTHYRONINE SODIUM
  10. DIFLUCAN [Concomitant]
     Active Substance: FLUCONAZOLE
  11. FOLIC ACID [Concomitant]
     Active Substance: FOLIC ACID
  12. GABAPENTIN [Concomitant]
     Active Substance: GABAPENTIN
  13. HYOSCYAMINE [Concomitant]
     Active Substance: HYOSCYAMINE
  14. MELOXICAM [Concomitant]
     Active Substance: MELOXICAM
  15. MICROGESTIN [Concomitant]
     Active Substance: ETHINYL ESTRADIOL\NORETHINDRONE ACETATE
  16. MODAFINIL [Concomitant]
     Active Substance: MODAFINIL
  17. MONTELUKAST [Concomitant]
     Active Substance: MONTELUKAST
  18. MUPIROCIN [Concomitant]
     Active Substance: MUPIROCIN
  19. NYSTATIN [Concomitant]
     Active Substance: NYSTATIN
  20. ONDANSETRON [Concomitant]
     Active Substance: ONDANSETRON
  21. PROBIOTICS NOS [Concomitant]
     Active Substance: PROBIOTICS NOS
  22. RITALIN [Concomitant]
     Active Substance: METHYLPHENIDATE HYDROCHLORIDE
  23. VENTOLIN HFA [Concomitant]
     Active Substance: ALBUTEROL SULFATE
  24. VITAMIN D3 [Concomitant]
     Active Substance: CHOLECALCIFEROL
  25. XOLAIR [Concomitant]
     Active Substance: OMALIZUMAB
  26. ZYRTEC [Concomitant]
     Active Substance: CETIRIZINE HYDROCHLORIDE

REACTIONS (7)
  - Gastric ulcer [Recovered/Resolved]
  - Oesophageal obstruction [Recovered/Resolved]
  - Nausea [Recovered/Resolved]
  - Vomiting [Recovered/Resolved]
  - Bronchitis [Unknown]
  - Sinusitis [Unknown]
  - Tonsillitis streptococcal [Unknown]
